FAERS Safety Report 9991814 (Version 1)
Quarter: 2014Q1

REPORT INFORMATION
  Report Type: Spontaneous
  Country: US (occurrence: None)
  Receive Date: 20140123
  Receipt Date: 20140123
  Transmission Date: 20141002
  Serious: Yes (Hospitalization)
  Sender: FDA-Public Use
  Company Number: UTC-040260

PATIENT
  Age: 61 Year
  Sex: Male
  Weight: 100 kg

DRUGS (4)
  1. TYVASO [Suspect]
     Indication: COR PULMONALE CHRONIC
     Dosage: 18 TO 54 MCGS (4 IN 1 D), INHALATION
     Route: 055
     Dates: start: 20130627
  2. ADCIRCA [Concomitant]
  3. LETAIRIS [Concomitant]
  4. WARFARIN [Concomitant]

REACTIONS (1)
  - Haemoptysis [None]
